FAERS Safety Report 15035902 (Version 1)
Quarter: 2018Q2

REPORT INFORMATION
  Report Type: Spontaneous
  Country: US (occurrence: US)
  Receive Date: 20180530
  Receipt Date: 20180530
  Transmission Date: 20180711
  Serious: Yes (Hospitalization)
  Sender: FDA-Public Use
  Company Number: None

PATIENT
  Age: 16 Year
  Sex: Male

DRUGS (1)
  1. VOTRIENT [Suspect]
     Active Substance: PAZOPANIB HYDROCHLORIDE
     Route: 048
     Dates: start: 20180424, end: 20180517

REACTIONS (5)
  - Protein urine present [None]
  - Abdominal pain [None]
  - Dehydration [None]
  - Hepatic enzyme increased [None]
  - Thyroid disorder [None]

NARRATIVE: CASE EVENT DATE: 20180517
